FAERS Safety Report 4666656-3 (Version None)
Quarter: 2005Q2

REPORT INFORMATION
  Report Type: 
  Country: None (occurrence: None)
  Receive Date: 20050518
  Receipt Date: 20050506
  Transmission Date: 20051028
  Serious: Yes (Hospitalization)
  Sender: FDA-Public Use
  Company Number: KII-2005-0016500

PATIENT
  Age: 16 Year
  Sex: Male

DRUGS (3)
  1. OXYCONTIN [Suspect]
     Dosage: UNK, ORAL
     Route: 048
  2. OTHER ANALGESICS AND ANTIPYRETICS [Suspect]
     Dosage: UNK, ORAL
     Route: 048
  3. METHYLPHENIDATE HCL [Concomitant]

REACTIONS (4)
  - AGGRESSION [None]
  - DISORIENTATION [None]
  - HEART RATE INCREASED [None]
  - MULTIPLE DRUG OVERDOSE [None]
